FAERS Safety Report 8768407 (Version 1)
Quarter: 2012Q4

REPORT INFORMATION
  Report Type: 
  Country: US (occurrence: US)
  Receive Date: 20120904
  Receipt Date: 20120904
  Transmission Date: 20130627
  Serious: No
  Sender: FDA-Public Use
  Company Number: US-AMGEN-USASP2012050155

PATIENT
  Age: 50 Year
  Sex: Female
  Weight: 57.6 kg

DRUGS (4)
  1. ENBREL [Suspect]
     Indication: RHEUMATOID ARTHRITIS
     Dosage: 50 mg, qwk
     Route: 058
     Dates: start: 201204
  2. METHOTREXATE [Concomitant]
     Indication: RHEUMATOID ARTHRITIS
     Dosage: 8 tabs qwk
     Route: 048
     Dates: start: 201111
  3. FOLIC ACID [Concomitant]
     Indication: RHEUMATOID ARTHRITIS
     Dosage: 1 tab qd
     Route: 048
     Dates: start: 201111
  4. TOPIRAMATE [Concomitant]
     Indication: HEADACHE
     Dosage: 1 am 2 pm
     Dates: start: 2011

REACTIONS (2)
  - Muscle spasms [Recovered/Resolved]
  - Vulvovaginal mycotic infection [Recovered/Resolved]
